FAERS Safety Report 24465227 (Version 1)
Quarter: 2024Q4

REPORT INFORMATION
  Report Type: Report from Study
  Country: US (occurrence: US)
  Receive Date: 20241018
  Receipt Date: 20241018
  Transmission Date: 20250115
  Serious: No
  Sender: ROCHE
  Company Number: US-ROCHE-3529785

PATIENT
  Age: 63 Year
  Sex: Male
  Weight: 61.23 kg

DRUGS (3)
  1. XOLAIR [Suspect]
     Active Substance: OMALIZUMAB
     Indication: Chronic spontaneous urticaria
     Dosage: 2 INJECTIONS; ONE IN EACH ARM, EVERY 28 DAYS
     Route: 058
     Dates: start: 202301
  2. XOLAIR [Suspect]
     Active Substance: OMALIZUMAB
     Indication: Idiopathic urticaria
  3. ZYRTEC [Concomitant]
     Active Substance: CETIRIZINE HYDROCHLORIDE

REACTIONS (1)
  - Hernia [Recovering/Resolving]

NARRATIVE: CASE EVENT DATE: 20231110
